FAERS Safety Report 5569825-3 (Version None)
Quarter: 2007Q4

REPORT INFORMATION
  Report Type: 
  Country: None (occurrence: None)
  Receive Date: 20071220
  Receipt Date: 20070305
  Transmission Date: 20080405
  Serious: No
  Sender: FDA-Public Use
  Company Number: US-ABBOTT-07P-163-0361761-00

PATIENT
  Sex: Female
  Weight: 8.172 kg

DRUGS (1)
  1. OMNICEF [Suspect]
     Indication: DRUG EXPOSURE DURING PREGNANCY
     Route: 063

REACTIONS (1)
  - DIARRHOEA [None]
